FAERS Safety Report 6510215-4 (Version None)
Quarter: 2009Q4

REPORT INFORMATION
  Report Type: 
  Country: None (occurrence: None)
  Receive Date: 20091222
  Receipt Date: 20091214
  Transmission Date: 20100525
  Serious: Yes (Other)
  Sender: FDA-Public Use
  Company Number: NL-WYE-H12619909

PATIENT
  Age: 42 Year
  Sex: Female

DRUGS (10)
  1. VENLAFAXINE HYDROCHLORIDE [Suspect]
     Indication: DEPRESSION
  2. VENLAFAXINE HYDROCHLORIDE [Suspect]
  3. FUROSEMIDE [Concomitant]
     Dosage: 40 MG, FREQUENCY NOT SPECIFIED
  4. METOPROLOL TARTRATE [Concomitant]
     Dosage: 100 MG, FREQUENCY NOT SPECIFIED
  5. PANTOPRAZOLE [Concomitant]
     Dosage: 20 MG, FREQUENCY NOT SPECIFIED
  6. ZOPICLONE [Concomitant]
     Dosage: 7.5 MG, FREQUENCY NOT SPECIFIED
  7. VALSARTAN [Concomitant]
     Dosage: 80 MG, FREQUENCY NOT SPECIFIED
  8. ROSIGLITAZONE [Concomitant]
     Dosage: 4 MG, FREQUENCY NOT SPECIFIED
  9. URSO 250 [Concomitant]
  10. SIMVASTATIN [Concomitant]
     Dosage: 40 MG, FREQUENCY NOT SPECIFIED

REACTIONS (9)
  - AGITATION [None]
  - CONDITION AGGRAVATED [None]
  - DEPRESSION [None]
  - DRUG INEFFECTIVE [None]
  - DRUG TOXICITY [None]
  - DYSPNOEA [None]
  - FATIGUE [None]
  - PARAESTHESIA [None]
  - TACHYCARDIA [None]
